FAERS Safety Report 20789808 (Version 1)
Quarter: 2022Q2

REPORT INFORMATION
  Report Type: Report from Study
  Country: US (occurrence: US)
  Receive Date: 20220505
  Receipt Date: 20220505
  Transmission Date: 20220721
  Serious: Yes (Hospitalization, Disabling, Other)
  Sender: FDA-Public Use
  Company Number: US-BRISTOL-MYERS SQUIBB COMPANY-2022-027103

PATIENT
  Age: 83 Year
  Sex: Male

DRUGS (1)
  1. REVLIMID [Suspect]
     Active Substance: LENALIDOMIDE
     Indication: Plasma cell myeloma
     Dosage: DAYS 1-21 , 28 DAY CYCLE
     Route: 048
     Dates: start: 2018

REACTIONS (4)
  - Diaphragmatic paralysis [Unknown]
  - Neuropathy peripheral [Unknown]
  - Balance disorder [Unknown]
  - Polyp [Unknown]
